FAERS Safety Report 13197526 (Version 15)
Quarter: 2019Q2

REPORT INFORMATION
  Report Type: Spontaneous
  Country: US (occurrence: US)
  Receive Date: 20170208
  Receipt Date: 20190528
  Transmission Date: 20190711
  Serious: Yes (Other)
  Sender: FDA-Public Use
  Company Number: US-PFIZER INC-2017056061

PATIENT
  Age: 68 Year
  Sex: Male

DRUGS (31)
  1. MIRALAX [Concomitant]
     Active Substance: POLYETHYLENE GLYCOL 3350
     Dosage: UNK
     Dates: start: 20141025
  2. ACETAMINOPHEN-HYDROCODONE [Concomitant]
     Active Substance: ACETAMINOPHEN\HYDROCODONE
     Indication: PAIN
     Dosage: 7.5 MG, EVERY 4 TO 6 HOURS (AS NEEDED)
  3. DILANTIN [Suspect]
     Active Substance: PHENYTOIN
     Dosage: 3 DF (THREE CAPSULES), AT NIGHT TIME
     Route: 048
  4. CELONTIN [Concomitant]
     Active Substance: METHSUXIMIDE
     Indication: SEIZURE
     Dosage: UNK
     Dates: start: 1965
  5. DILANTIN [Suspect]
     Active Substance: PHENYTOIN
     Dosage: 2 DF (TWO CAPSULES), EVERY 48 HOURS
     Route: 048
  6. ZETIA [Concomitant]
     Active Substance: EZETIMIBE
     Dosage: 10 MG, DAILY (EVERY NIGHT AT BEDTIME)
     Route: 048
  7. XANAX [Concomitant]
     Active Substance: ALPRAZOLAM
     Indication: ANXIETY
     Dosage: 0.25 MG, 2X/DAY
     Route: 048
  8. DILANTIN [Suspect]
     Active Substance: PHENYTOIN
     Indication: SEIZURE
     Dosage: 500 MG, DAILY (2 CAPSULES OF 100 MG EVERY 05:00 HRS AND 3 CAPSULES OF 100 MG EVERY 17:00 HRS)
     Route: 048
     Dates: start: 20140112
  9. DILANTIN [Suspect]
     Active Substance: PHENYTOIN
     Dosage: 300 MG, AS NEEDED (200 MG MORNING, 100 MG NIGHT)
     Dates: start: 20171208
  10. ECOTRIN [Concomitant]
     Active Substance: ASPIRIN
     Dosage: 81 MG, UNK
     Dates: start: 20120118
  11. MIRALAX [Concomitant]
     Active Substance: POLYETHYLENE GLYCOL 3350
     Dosage: UNK, DAILY
     Dates: start: 20171208
  12. CELONTIN [Concomitant]
     Active Substance: METHSUXIMIDE
     Dosage: 300 MG, 2X/DAY
     Route: 048
  13. ZETIA [Concomitant]
     Active Substance: EZETIMIBE
     Dosage: 10 MG, UNK (NIGHT)
     Dates: start: 20171208
  14. TRAMADOL. [Concomitant]
     Active Substance: TRAMADOL
     Indication: PAIN
     Dosage: 50 MG, UNK (EVERY 6 HOURS)
     Dates: start: 20171208
  15. CEPHALEXIN MONOHYDRATE. [Concomitant]
     Active Substance: CEPHALEXIN MONOHYDRATE
     Dosage: 1 DF, 3X/DAY
     Route: 048
  16. DILANTIN [Suspect]
     Active Substance: PHENYTOIN
     Indication: SEIZURE
     Dosage: 500 MG, DAILY
     Dates: start: 20050129
  17. DILANTIN [Suspect]
     Active Substance: PHENYTOIN
     Dosage: 2 DF (TWO CAPSULES), EVERY MORNING
     Route: 048
  18. MIRALAX [Concomitant]
     Active Substance: POLYETHYLENE GLYCOL 3350
     Dosage: 17 MG, DAILY
     Route: 048
  19. ASPIRIN. [Concomitant]
     Active Substance: ASPIRIN
     Dosage: 81 MG, UNK (MORNING)
     Dates: start: 20171208
  20. METOPROLOL TARTRATE. [Concomitant]
     Active Substance: METOPROLOL TARTRATE
     Dosage: 25 MG, 2X/DAY
     Route: 048
  21. NITROSTAT [Concomitant]
     Active Substance: NITROGLYCERIN
     Indication: CHEST PAIN
     Dosage: 0.4 MG, AS NEEDED
     Route: 060
  22. DILANTIN [Suspect]
     Active Substance: PHENYTOIN
     Dosage: 100 MG, 4X/DAY (2 CAPSULES OF 100 MG EVERY 05:00 HRS AND 2 CAPSULES OF 100 MG EVERY 17:00 HRS
     Route: 048
     Dates: start: 20140113
  23. DILANTIN [Suspect]
     Active Substance: PHENYTOIN
     Indication: SEIZURE
     Dosage: UNK
     Dates: start: 1962
  24. DILANTIN [Suspect]
     Active Substance: PHENYTOIN
     Dosage: 1000 MG, SINGLE
     Route: 042
     Dates: start: 20141026, end: 20141026
  25. CELONTIN [Concomitant]
     Active Substance: METHSUXIMIDE
     Dosage: 600 MG, UNK (300 MG MORNING, 300 MG NIGHT)
     Dates: start: 20171208
  26. METOPROLOL SUCCINATE. [Concomitant]
     Active Substance: METOPROLOL SUCCINATE
     Dosage: 50 MG, UNK (25 MG MORNING, 25 MG NIGHT)
     Dates: start: 20171208
  27. ZONEGRAN [Concomitant]
     Active Substance: ZONISAMIDE
     Dosage: 300 MG, UNK (100 MG MORNING, 200 MG NIGHT)
     Dates: start: 20171208
  28. ALPRAZOLAM. [Concomitant]
     Active Substance: ALPRAZOLAM
     Dosage: 0.25 MG, AS NEEDED (AT BEDTIME)
     Dates: start: 20171208
  29. OXYCODONE [Concomitant]
     Active Substance: OXYCODONE
     Indication: PAIN
     Dosage: 15 MG, EVERY 4 HRS (AS NEED)
     Dates: start: 20171208
  30. PLAVIX [Concomitant]
     Active Substance: CLOPIDOGREL BISULFATE
     Dosage: 75 MG, DAILY
     Route: 048
  31. DICLOFENAC POTASSIUM. [Concomitant]
     Active Substance: DICLOFENAC POTASSIUM
     Indication: INFLAMMATION
     Dosage: 1 DF, 2X/DAY
     Route: 048

REACTIONS (4)
  - Cerebellar atrophy [Not Recovered/Not Resolved]
  - Neuropathy peripheral [Not Recovered/Not Resolved]
  - Anxiety disorder [Unknown]
  - Tarsal tunnel syndrome [Unknown]

NARRATIVE: CASE EVENT DATE: 201605
